FAERS Safety Report 8398107-X (Version None)
Quarter: 2012Q2

REPORT INFORMATION
  Report Type: 
  Country: None (occurrence: None)
  Receive Date: 20120524
  Receipt Date: 20120511
  Transmission Date: 20120825
  Serious: Yes (Other)
  Sender: FDA-Public Use
  Company Number: AUR-APL-2012-02147

PATIENT
  Age: 57 Year
  Sex: Male

DRUGS (1)
  1. RAMIPRIL [Suspect]
     Indication: BLOOD PRESSURE
     Dosage: (2.5 MG), ORAL
     Route: 048

REACTIONS (1)
  - CONVULSION [None]
